FAERS Safety Report 17527360 (Version 1)
Quarter: 2020Q1

REPORT INFORMATION
  Report Type: Spontaneous
  Country: US (occurrence: US)
  Receive Date: 20200303
  Receipt Date: 20200303
  Transmission Date: 20200409
  Serious: No
  Sender: FDA-Public Use
  Company Number: None

PATIENT
  Age: 39 Year
  Sex: Female

DRUGS (1)
  1. PROGRESTERONE/OIL 50MG/ML AUROMEDICS PHARMA [Suspect]
     Active Substance: PROGESTERONE
     Indication: PREGNANCY
     Route: 041
     Dates: start: 20200205, end: 20200217

REACTIONS (3)
  - Eye swelling [None]
  - Injection site pruritus [None]
  - Urticaria [None]

NARRATIVE: CASE EVENT DATE: 20200210
